FAERS Safety Report 16394302 (Version 1)
Quarter: 2019Q2

REPORT INFORMATION
  Report Type: Report from Study
  Country: US (occurrence: US)
  Receive Date: 20190605
  Receipt Date: 20190605
  Transmission Date: 20190711
  Serious: Yes (Other)
  Sender: FDA-Public Use
  Company Number: PHEH2019US022989

PATIENT
  Sex: Male

DRUGS (1)
  1. ENTRESTO [Suspect]
     Active Substance: SACUBITRIL\VALSARTAN
     Indication: PRODUCT USED FOR UNKNOWN INDICATION
     Dosage: UNK
     Route: 065

REACTIONS (11)
  - Renal failure [Unknown]
  - Skin discolouration [Unknown]
  - Pain [Unknown]
  - Diabetes mellitus [Unknown]
  - Chest pain [Unknown]
  - Back pain [Unknown]
  - Gangrene [Unknown]
  - Weight decreased [Unknown]
  - Oxygen saturation decreased [Unknown]
  - Cardiac failure congestive [Recovering/Resolving]
  - Wound [Unknown]
